FAERS Safety Report 8349286-1 (Version None)
Quarter: 2012Q2

REPORT INFORMATION
  Report Type: 
  Country: None (occurrence: None)
  Receive Date: 20120510
  Receipt Date: 20120509
  Transmission Date: 20120825
  Serious: Yes (Death)
  Sender: FDA-Public Use
  Company Number: PHHY2012NL032049

PATIENT
  Sex: Male
  Weight: 85 kg

DRUGS (13)
  1. ZOMETA [Suspect]
     Indication: PROSTATE CANCER METASTATIC
     Dosage: 4 MG/ 100 ML ONCE PER MONTH
     Route: 042
     Dates: start: 20101223
  2. LYRICA [Concomitant]
  3. LASIX [Concomitant]
  4. ZOMETA [Suspect]
     Dosage: 4 MG/ 100 ML ONCE PER MONTH
     Route: 042
     Dates: start: 20120223
  5. OXYCODONE HCL [Concomitant]
  6. MOVICOLON [Concomitant]
  7. ZOMETA [Suspect]
     Dosage: 4 MG/ 100 ML ONCE PER MONTH
     Route: 042
     Dates: start: 20120320
  8. ACETAMINOPHEN [Concomitant]
  9. PROTON PUMP INHIBITORS [Concomitant]
  10. METHADONE HCL [Concomitant]
  11. PREDNISONE TAB [Concomitant]
  12. PERSANTIN [Concomitant]
  13. ASCAL [Concomitant]

REACTIONS (3)
  - NEOPLASM MALIGNANT [None]
  - NEOPLASM PROGRESSION [None]
  - GENERAL PHYSICAL HEALTH DETERIORATION [None]
